FAERS Safety Report 4478773-1 (Version None)
Quarter: 2004Q4

REPORT INFORMATION
  Report Type: 
  Country: None (occurrence: None)
  Receive Date: 20040923
  Receipt Date: 20040602
  Transmission Date: 20050328
  Serious: No
  Sender: FDA-Public Use
  Company Number: USA040566451

PATIENT
  Age: 81 Year
  Sex: Female
  Weight: 39 kg

DRUGS (8)
  1. FORTEO [Suspect]
     Indication: OSTEOPOROSIS
     Dosage: 20 UG DAY
     Dates: start: 20040403, end: 20040601
  2. FOSAMAX [Concomitant]
  3. METOPROLOL [Concomitant]
  4. NEXIUM [Concomitant]
  5. IRON [Concomitant]
  6. MULTIVITAMIN [Concomitant]
  7. TUMS (CALCIUM CARBONATE) [Concomitant]
  8. ADVAIR [Concomitant]

REACTIONS (7)
  - ANOREXIA [None]
  - ASTHENIA [None]
  - FALL [None]
  - FATIGUE [None]
  - FEELING ABNORMAL [None]
  - NERVOUSNESS [None]
  - PAIN [None]
